FAERS Safety Report 7610956-1 (Version None)
Quarter: 2011Q3

REPORT INFORMATION
  Report Type: 
  Country: None (occurrence: None)
  Receive Date: 20110715
  Receipt Date: 20110704
  Transmission Date: 20111222
  Serious: Yes (Other)
  Sender: FDA-Public Use
  Company Number: PHHY2011NL60402

PATIENT
  Sex: Male

DRUGS (3)
  1. ZOMETA [Suspect]
     Indication: METASTATIC RENAL CELL CARCINOMA
     Dosage: 4 MG/5 ML PER 28 DAYS
     Dates: start: 20100311
  2. ZOMETA [Suspect]
     Dosage: 4 MG/5 ML PER 28 DAYS
     Dates: start: 20110606
  3. ZOMETA [Suspect]
     Dosage: 4 MG/5 ML PER 28 DAYS
     Dates: start: 20110704

REACTIONS (4)
  - TERMINAL STATE [None]
  - HYPERSOMNIA [None]
  - SLOW RESPONSE TO STIMULI [None]
  - GENERAL PHYSICAL HEALTH DETERIORATION [None]
